FAERS Safety Report 9198106 (Version 1)
Quarter: 2013Q1

REPORT INFORMATION
  Report Type: Spontaneous
  Country: CA (occurrence: CA)
  Receive Date: 20130329
  Receipt Date: 20130329
  Transmission Date: 20140127
  Serious: Yes (Other)
  Sender: FDA-Public Use
  Company Number: CA-ELI_LILLY_AND_COMPANY-CA201303006785

PATIENT
  Sex: Male

DRUGS (1)
  1. HUMALOG LISPRO [Suspect]
     Dosage: UNK

REACTIONS (1)
  - Dementia [Not Recovered/Not Resolved]
